FAERS Safety Report 5966456-8 (Version None)
Quarter: 2008Q4

REPORT INFORMATION
  Report Type: 
  Country: None (occurrence: None)
  Receive Date: 20081125
  Receipt Date: 20081113
  Transmission Date: 20090506
  Serious: Yes (Hospitalization, Other)
  Sender: FDA-Public Use
  Company Number: ES-ROCHE-594520

PATIENT
  Sex: Male
  Weight: 49.7 kg

DRUGS (4)
  1. PEG-INTERFERON ALFA 2A (RO 25-8310) [Suspect]
     Route: 058
     Dates: start: 20080917, end: 20081029
  2. RIBAVIRIN [Suspect]
     Route: 048
     Dates: end: 20081029
  3. METHADONE HCL [Concomitant]
     Dates: start: 20000101
  4. PARACETAMOL [Concomitant]
     Dosage: IF NEEDED
     Dates: start: 20080917

REACTIONS (2)
  - DYSPNOEA [None]
  - PULMONARY ARTERIAL HYPERTENSION [None]
